FAERS Safety Report 11468396 (Version 2)
Quarter: 2015Q3

REPORT INFORMATION
  Report Type: Spontaneous
  Country: US (occurrence: US)
  Receive Date: 20150903
  Receipt Date: 20150903
  Transmission Date: 20151125
  Serious: No
  Sender: FDA-Public Use
  Company Number: US-ELI_LILLY_AND_COMPANY-US201108006184

PATIENT
  Age: 64 Year
  Sex: Female
  Weight: 72.56 kg

DRUGS (4)
  1. CYMBALTA [Suspect]
     Active Substance: DULOXETINE HYDROCHLORIDE
     Dosage: 30 MG, BID
     Route: 048
     Dates: start: 201107
  2. CYMBALTA [Suspect]
     Active Substance: DULOXETINE HYDROCHLORIDE
     Dosage: 30 MG, BID
     Route: 048
  3. CYMBALTA [Suspect]
     Active Substance: DULOXETINE HYDROCHLORIDE
     Indication: DEPRESSION
     Dosage: 30 MG, BID
     Route: 048
     Dates: start: 20070507, end: 201101
  4. VITAMINS [Concomitant]
     Active Substance: VITAMINS

REACTIONS (17)
  - Hearing impaired [Unknown]
  - Ear congestion [Unknown]
  - Adverse event [Unknown]
  - Sinusitis [Unknown]
  - Sudden onset of sleep [Unknown]
  - Feeling jittery [Unknown]
  - Drug dose omission [Unknown]
  - Pain in jaw [Unknown]
  - Nausea [Unknown]
  - Dizziness [Unknown]
  - Viral infection [Unknown]
  - Toothache [Unknown]
  - Acne pustular [Unknown]
  - Nervousness [Unknown]
  - Headache [Unknown]
  - Feeling cold [Unknown]
  - Malaise [Unknown]

NARRATIVE: CASE EVENT DATE: 20110826
